FAERS Safety Report 5361081-4 (Version None)
Quarter: 2007Q2

REPORT INFORMATION
  Report Type: 
  Country: None (occurrence: None)
  Receive Date: 20070618
  Receipt Date: 20070612
  Transmission Date: 20071010
  Serious: Yes (Hospitalization, Other)
  Sender: FDA-Public Use
  Company Number: JP-PFIZER INC-2007048747

PATIENT
  Sex: Male

DRUGS (2)
  1. VIAGRA [Suspect]
     Route: 048
  2. ASPIRIN [Concomitant]
     Route: 048

REACTIONS (2)
  - CEREBRAL INFARCTION [None]
  - DIABETES MELLITUS [None]
